FAERS Safety Report 9669271 (Version 1)
Quarter: 2013Q4

REPORT INFORMATION
  Report Type: Spontaneous
  Country: US (occurrence: US)
  Receive Date: 20131105
  Receipt Date: 20131105
  Transmission Date: 20140711
  Serious: No
  Sender: FDA-Public Use
  Company Number: US-VERTEX PHARMACEUTICALS INC-2013-010699

PATIENT
  Age: 42 Year
  Sex: Male
  Weight: 97.96 kg

DRUGS (8)
  1. INCIVEK [Suspect]
     Indication: HEPATITIS C
     Dosage: 750 MG, TID
     Route: 048
     Dates: start: 20130927
  2. RIBAVIRIN [Suspect]
     Indication: HEPATITIS C
     Dosage: 3 TAB, BID
     Route: 048
     Dates: start: 20130927
  3. PEGASYS [Suspect]
     Indication: HEPATITIS C
     Dosage: 180 ?G, QW
     Route: 058
     Dates: start: 20130927
  4. LAMICTAL [Concomitant]
     Dosage: 100 MG, QD
  5. LAMICTAL [Concomitant]
     Dosage: 200 MG, QD
  6. EFFEXOR [Concomitant]
     Dosage: 150 MG, QD
  7. TRAZODONE [Concomitant]
     Dosage: 100 MG, UNK
  8. KLONOPIN [Concomitant]
     Dosage: 1 MG, BID

REACTIONS (5)
  - Depression [Not Recovered/Not Resolved]
  - Mood swings [Not Recovered/Not Resolved]
  - Fatigue [Not Recovered/Not Resolved]
  - Asthenia [Not Recovered/Not Resolved]
  - Nausea [Not Recovered/Not Resolved]
